FAERS Safety Report 10954598 (Version 1)
Quarter: 2015Q1

REPORT INFORMATION
  Report Type: Spontaneous
  Country: IL (occurrence: IL)
  Receive Date: 20150325
  Receipt Date: 20150325
  Transmission Date: 20150721
  Serious: Yes (Hospitalization)
  Sender: FDA-Public Use
  Company Number: IL-BAYER-2015-067652

PATIENT
  Sex: Male

DRUGS (16)
  1. ZINNAT [Concomitant]
     Active Substance: CEFUROXIME AXETIL
     Dosage: UNK
  2. FUSID [Concomitant]
     Active Substance: FUROSEMIDE
     Dosage: UNK
  3. XATRAL [Concomitant]
     Active Substance: ALFUZOSIN
     Dosage: UNK
  4. IBUPROFEN. [Concomitant]
     Active Substance: IBUPROFEN
  5. ASPIRIN. [Suspect]
     Active Substance: ASPIRIN
     Dosage: UNK
  6. KONAKION [Concomitant]
     Active Substance: PHYTONADIONE
     Dosage: UNK
  7. XARELTO [Suspect]
     Active Substance: RIVAROXABAN
     Indication: CEREBROVASCULAR ACCIDENT PROPHYLAXIS
  8. AMLODIPINE [Suspect]
     Active Substance: AMLODIPINE BESYLATE
     Dosage: UNK
  9. HALOPERIDOL. [Concomitant]
     Active Substance: HALOPERIDOL
     Dosage: UNK
  10. ENALADEX [Concomitant]
     Active Substance: ENALAPRIL MALEATE
     Dosage: UNK
  11. LIPITOR [Concomitant]
     Active Substance: ATORVASTATIN CALCIUM
     Dosage: UNK
  12. DOPAMINE [DOPAMINE HYDROCHLORIDE] [Concomitant]
     Dosage: UNK
  13. XARELTO [Suspect]
     Active Substance: RIVAROXABAN
     Indication: ATRIAL FIBRILLATION
     Dosage: 15 MG, UNK
     Dates: end: 2015
  14. ROCEFIN [Concomitant]
     Active Substance: CEFTRIAXONE SODIUM
     Dosage: UNK
  15. ALDACTONE [Concomitant]
     Active Substance: SPIRONOLACTONE
     Dosage: UNK
  16. POTASSIUM [Concomitant]
     Active Substance: POTASSIUM
     Dosage: UNK

REACTIONS (2)
  - Haematuria [Recovered/Resolved]
  - International normalised ratio increased [None]
